FAERS Safety Report 4811065-7 (Version None)
Quarter: 2005Q4

REPORT INFORMATION
  Report Type: 
  Country: None (occurrence: None)
  Receive Date: 20051025
  Receipt Date: 20051010
  Transmission Date: 20060501
  Serious: Yes (Hospitalization)
  Sender: FDA-Public Use
  Company Number: 2005-0008797

PATIENT
  Age: 60 Year
  Sex: 0
  Weight: 73.5 kg

DRUGS (6)
  1. EMTRICITABINE (EMTRICITABINE) (TABLET) [Suspect]
     Indication: HIV INFECTION
     Dosage: 200 MG, 1 IN 1 D
     Dates: start: 20040713, end: 20050614
  2. TENOFOVIR DF  (TENOFOVIR DISOPROXIL FUMARATE) (TABLET) [Suspect]
     Indication: HIV INFECTION
     Dosage: 300 MG, 1 IN 1 D
     Dates: start: 20040713, end: 20050614
  3. KALETRA [Suspect]
     Indication: HIV INFECTION
     Dosage: 3 DOSAGE FORMS, 2 IN 1 D
     Dates: start: 20040713, end: 20050614
  4. ATENOLOL [Concomitant]
  5. DAPSONE [Concomitant]
  6. HYDROCHLOROTHIAZIDE [Concomitant]

REACTIONS (10)
  - BUNDLE BRANCH BLOCK RIGHT [None]
  - CARDIAC ARREST [None]
  - CAROTID ARTERY STENOSIS [None]
  - CEREBRAL INFARCTION [None]
  - CORONARY ARTERY STENOSIS [None]
  - GRAND MAL CONVULSION [None]
  - HYPOAESTHESIA [None]
  - MYOCARDIAL INFARCTION [None]
  - PARAESTHESIA [None]
  - VENTRICULAR FIBRILLATION [None]
